FAERS Safety Report 5720563-3 (Version None)
Quarter: 2008Q2

REPORT INFORMATION
  Report Type: 
  Country: None (occurrence: None)
  Receive Date: 20080423
  Receipt Date: 20080423
  Transmission Date: 20081010
  Serious: Yes (Other)
  Sender: FDA-Public Use
  Company Number: None

PATIENT
  Age: 13 Year
  Sex: Male
  Weight: 38.5557 kg

DRUGS (1)
  1. BUDEPRION XL  300MG  TEVA [Suspect]
     Indication: DEPRESSION
     Dosage: 300 MG ONCE A DAY PO
     Route: 048
     Dates: start: 20080320, end: 20080420

REACTIONS (9)
  - ABNORMAL BEHAVIOUR [None]
  - DEPRESSION [None]
  - EDUCATIONAL PROBLEM [None]
  - IRRITABILITY [None]
  - NEGATIVISM [None]
  - PHARMACEUTICAL PRODUCT COMPLAINT [None]
  - THERAPEUTIC RESPONSE UNEXPECTED WITH DRUG SUBSTITUTION [None]
  - THINKING ABNORMAL [None]
  - UNEVALUABLE EVENT [None]
